FAERS Safety Report 4514037-5 (Version None)
Quarter: 2004Q4

REPORT INFORMATION
  Report Type: 
  Country: None (occurrence: None)
  Receive Date: 20041130
  Receipt Date: 20030602
  Transmission Date: 20050328
  Serious: Yes (Other)
  Sender: FDA-Public Use
  Company Number: US-GLAXOSMITHKLINE-A0410325A

PATIENT
  Age: 47 Year
  Sex: Female

DRUGS (3)
  1. PAXIL [Suspect]
     Indication: DEPRESSION
     Dosage: 30MG PER DAY
     Route: 048
     Dates: start: 20010801, end: 20020501
  2. ZOLOFT [Suspect]
  3. ALCOHOL [Concomitant]
     Route: 048

REACTIONS (24)
  - ABDOMINAL PAIN UPPER [None]
  - ABNORMAL BEHAVIOUR [None]
  - AFFECT LABILITY [None]
  - AGGRESSION [None]
  - AKATHISIA [None]
  - ALCOHOL USE [None]
  - AMNESIA [None]
  - BREAST CANCER [None]
  - CEREBRAL DISORDER [None]
  - CRYING [None]
  - DISINHIBITION [None]
  - DISSOCIATION [None]
  - DIZZINESS [None]
  - DRUG WITHDRAWAL SYNDROME [None]
  - FEELING ABNORMAL [None]
  - FORMICATION [None]
  - GAIT DISTURBANCE [None]
  - MENTAL IMPAIRMENT [None]
  - MURDER [None]
  - NERVOUSNESS [None]
  - PERSONALITY DISORDER [None]
  - POISONING [None]
  - RESTLESSNESS [None]
  - SPEECH DISORDER [None]
